FAERS Safety Report 11224525 (Version 1)
Quarter: 2015Q2

REPORT INFORMATION
  Report Type: Spontaneous
  Country: US (occurrence: None)
  Receive Date: 20150626
  Receipt Date: 20150626
  Transmission Date: 20150821
  Serious: Yes (Hospitalization)
  Sender: FDA-Public Use
  Company Number: None

PATIENT
  Age: 79 Year
  Sex: Male
  Weight: 110.22 kg

DRUGS (23)
  1. SYSTANE (HYPROMELLOSE 2910 (4000 MPA.S)) [Concomitant]
     Active Substance: HYPROMELLOSE 2910 (4000 MPA.S)
  2. FUROSEMIDE. [Concomitant]
     Active Substance: FUROSEMIDE
  3. NOVOLOG [Concomitant]
     Active Substance: INSULIN ASPART
  4. KETOCONAZOLE. [Concomitant]
     Active Substance: KETOCONAZOLE
  5. LIDOCAINE. [Concomitant]
     Active Substance: LIDOCAINE
  6. MAGNESIUM [Concomitant]
     Active Substance: MAGNESIUM
  7. RIBAVIRIN. [Suspect]
     Active Substance: RIBAVIRIN
     Route: 048
  8. ADVAIR HFA [Concomitant]
     Active Substance: FLUTICASONE PROPIONATE\SALMETEROL XINAFOATE
  9. CYMBALTA [Concomitant]
     Active Substance: DULOXETINE HYDROCHLORIDE
  10. DILTIAZEM [Concomitant]
     Active Substance: DILTIAZEM
  11. TYLENOL [Concomitant]
     Active Substance: ACETAMINOPHEN
  12. TACROLIMUS. [Concomitant]
     Active Substance: TACROLIMUS
  13. URSODIOL. [Concomitant]
     Active Substance: URSODIOL
  14. CLEARLAX [Concomitant]
     Active Substance: POLYETHYLENE GLYCOL 3350
  15. PREDNISONE. [Concomitant]
     Active Substance: PREDNISONE
  16. COZAAR [Concomitant]
     Active Substance: LOSARTAN POTASSIUM
  17. GABAPENTIN. [Concomitant]
     Active Substance: GABAPENTIN
  18. DOCUSATE SODIUM. [Concomitant]
     Active Substance: DOCUSATE SODIUM
  19. KETOROLAC [Concomitant]
     Active Substance: KETOROLAC\KETOROLAC TROMETHAMINE
  20. WARFARIN [Concomitant]
     Active Substance: WARFARIN
  21. LOSARTAN [Concomitant]
     Active Substance: LOSARTAN
  22. HARVONI [Suspect]
     Active Substance: LEDIPASVIR\SOFOSBUVIR
     Indication: HEPATITIS C
     Route: 048
     Dates: start: 20150213
  23. LIDEX [Concomitant]
     Active Substance: FLUOCINONIDE

REACTIONS (1)
  - Pneumonia [None]

NARRATIVE: CASE EVENT DATE: 201502
